FAERS Safety Report 12761260 (Version 1)
Quarter: 2016Q3

REPORT INFORMATION
  Report Type: Spontaneous
  Country: US (occurrence: US)
  Receive Date: 20160920
  Receipt Date: 20160920
  Transmission Date: 20161109
  Serious: No
  Sender: FDA-Public Use
  Company Number: US-TEVA-651487USA

PATIENT
  Age: 63 Year
  Sex: Female

DRUGS (1)
  1. CARVEDILOL. [Suspect]
     Active Substance: CARVEDILOL
     Dates: start: 20160330

REACTIONS (5)
  - Blood pressure increased [Recovered/Resolved]
  - Drug ineffective [Unknown]
  - Limb discomfort [Unknown]
  - Paraesthesia [Unknown]
  - Headache [Unknown]

NARRATIVE: CASE EVENT DATE: 20160402
